FAERS Safety Report 5207180-9 (Version None)
Quarter: 2007Q1

REPORT INFORMATION
  Report Type: 
  Country: None (occurrence: None)
  Receive Date: 20070112
  Receipt Date: 20070111
  Transmission Date: 20070707
  Serious: Yes (Hospitalization)
  Sender: FDA-Public Use
  Company Number: US-GLAXOSMITHKLINE-A0603968A

PATIENT
  Age: 14 Year
  Sex: Female

DRUGS (7)
  1. PAXIL [Suspect]
     Indication: DEPRESSION
     Dosage: 50MG PER DAY
     Route: 048
     Dates: start: 20010101, end: 20010401
  2. MYLANTA [Suspect]
     Dosage: 23TAB SINGLE DOSE
     Route: 048
  3. ZYPREXA [Concomitant]
  4. ATIVAN [Concomitant]
  5. WELLBUTRIN SR [Concomitant]
     Dates: start: 20010401
  6. LITHIUM CARBONATE [Concomitant]
  7. DEPAKOTE [Concomitant]

REACTIONS (16)
  - ABNORMAL DREAMS [None]
  - AGITATION [None]
  - DEPRESSION [None]
  - DISINHIBITION [None]
  - FEELING ABNORMAL [None]
  - FEELINGS OF WORTHLESSNESS [None]
  - HALLUCINATION [None]
  - IMPULSIVE BEHAVIOUR [None]
  - MOOD SWINGS [None]
  - OVERDOSE [None]
  - PERSONALITY DISORDER [None]
  - PSYCHOTIC DISORDER [None]
  - RESTLESSNESS [None]
  - SELF MUTILATION [None]
  - SUICIDAL IDEATION [None]
  - SUICIDE ATTEMPT [None]
